FAERS Safety Report 4901965-1 (Version None)
Quarter: 2006Q1

REPORT INFORMATION
  Report Type: 
  Country: None (occurrence: None)
  Receive Date: 20060206
  Receipt Date: 20060123
  Transmission Date: 20060701
  Serious: Yes (Other)
  Sender: FDA-Public Use
  Company Number: JP-ROCHE-433742

PATIENT
  Age: 19 Year
  Sex: Male

DRUGS (1)
  1. TAMIFLU [Suspect]
     Route: 048
     Dates: start: 20060111, end: 20060111

REACTIONS (4)
  - AGGRESSION [None]
  - RESTLESSNESS [None]
  - SKIN LACERATION [None]
  - VOMITING [None]
